FAERS Safety Report 9335389 (Version 1)
Quarter: 2013Q2

REPORT INFORMATION
  Report Type: Spontaneous
  Country: US (occurrence: US)
  Receive Date: 20130605
  Receipt Date: 20130605
  Transmission Date: 20140414
  Serious: Yes (Other)
  Sender: FDA-Public Use
  Company Number: US-PFIZER INC-2013168412

PATIENT
  Age: 28 Year
  Sex: Male

DRUGS (2)
  1. ALPRAZOLAM [Suspect]
     Dosage: UNK
  2. HEROIN [Suspect]
     Dosage: UNK

REACTIONS (8)
  - Overdose [Unknown]
  - Loss of consciousness [Recovering/Resolving]
  - Drooling [Unknown]
  - Cyanosis [Unknown]
  - Brain injury [Recovering/Resolving]
  - Chorea [Unknown]
  - Dystonia [Unknown]
  - Central nervous system lesion [Unknown]
